FAERS Safety Report 5925961-0 (Version None)
Quarter: 2008Q4

REPORT INFORMATION
  Report Type: 
  Country: None (occurrence: None)
  Receive Date: 20081021
  Receipt Date: 20081009
  Transmission Date: 20090506
  Serious: Yes (Other)
  Sender: FDA-Public Use
  Company Number: BR-PFIZER INC-2008085676

PATIENT
  Sex: Male
  Weight: 90 kg

DRUGS (2)
  1. ZOLOFT [Suspect]
     Indication: ANXIETY
     Dosage: TEXT:*ONE TABLET 1X/DAY EVERY DAY TDD:ONE TAB
     Route: 048
     Dates: start: 20080101
  2. FRONTAL [Concomitant]

REACTIONS (8)
  - APATHY [None]
  - DEPRESSED MOOD [None]
  - DYSKINESIA [None]
  - DYSPHAGIA [None]
  - MASTICATION DISORDER [None]
  - MOOD ALTERED [None]
  - MUSCLE RIGIDITY [None]
  - WEIGHT DECREASED [None]
